FAERS Safety Report 21977020 (Version 1)
Quarter: 2023Q1

REPORT INFORMATION
  Report Type: Spontaneous
  Country: US (occurrence: US)
  Receive Date: 20230210
  Receipt Date: 20230210
  Transmission Date: 20230417
  Serious: No
  Sender: FDA-Public Use
  Company Number: US-MYLANLABS-2023M1012795

PATIENT
  Sex: Female
  Weight: 110.2 kg

DRUGS (1)
  1. CELEBREX [Suspect]
     Active Substance: CELECOXIB
     Indication: Arthritis
     Dosage: 1 DOSAGE FORM
     Route: 065
     Dates: start: 20220422

REACTIONS (1)
  - Therapeutic product effect incomplete [Unknown]
